FAERS Safety Report 10423372 (Version 1)
Quarter: 2014Q3

REPORT INFORMATION
  Report Type: Spontaneous
  Country: US (occurrence: US)
  Receive Date: 20140902
  Receipt Date: 20140902
  Transmission Date: 20150326
  Serious: Yes (Hospitalization)
  Sender: FDA-Public Use
  Company Number: US-SA-2014SA118271

PATIENT
  Sex: Female

DRUGS (1)
  1. DDAVP [Suspect]
     Active Substance: DESMOPRESSIN ACETATE
     Indication: VON WILLEBRAND^S DISEASE
     Route: 065

REACTIONS (3)
  - Coma [Recovered/Resolved]
  - Hyponatraemia [Recovered/Resolved]
  - Memory impairment [Unknown]
